FAERS Safety Report 9638373 (Version 1)
Quarter: 2013Q4

REPORT INFORMATION
  Report Type: Spontaneous
  Country: JP (occurrence: JP)
  Receive Date: 20131022
  Receipt Date: 20131022
  Transmission Date: 20140711
  Serious: Yes (Other)
  Sender: FDA-Public Use
  Company Number: JP-GLAXOSMITHKLINE-B0932688A

PATIENT
  Sex: Female

DRUGS (2)
  1. PAXIL [Suspect]
     Indication: PRODUCT USED FOR UNKNOWN INDICATION
     Dosage: 30MG PER DAY
     Route: 048
  2. CYMBALTA [Concomitant]
     Route: 048

REACTIONS (1)
  - Electrocardiogram QT prolonged [Not Recovered/Not Resolved]
